FAERS Safety Report 8620046 (Version 2)
Quarter: 2013Q1

REPORT INFORMATION
  Report Type: Spontaneous
  Country: CA (occurrence: None)
  Receive Date: 20120524
  Receipt Date: 20120906
  Transmission Date: 20140127
  Serious: Yes (Hospitalization)
  Sender: FDA-Public Use
  Company Number: 2012032341

PATIENT
  Age: 66 Year
  Sex: Male

DRUGS (15)
  1. PRIVIGEN [Suspect]
     Dosage: 15 G TOTAL, AT MAX RATE OF 0.06 ML/KG/MIN INTRAVEVOUS (NOT OTHERWISE SPECIFIED)?
     Route: 042
     Dates: start: 20110805
  2. PRIVIGEN [Suspect]
     Dosage: 15 G TOTAL, AT MAX RATE OF 0.06 ML/KG/MIN INTRAVEVOUS (NOT OTHERWISE SPECIFIED)?
     Route: 042
     Dates: start: 20110805
  3. PREDNISONE [Concomitant]
  4. ATIVAN [Concomitant]
  5. VITAPHAKOL [Concomitant]
  6. VITAMIN B1 [Concomitant]
  7. ALENDRONATE SODIUM [Concomitant]
  8. FINASTERIDE [Concomitant]
  9. NEXIUM [Concomitant]
  10. CALCITE (CALCIUM CARBONATE) [Concomitant]
  11. VENLAFAXINE [Concomitant]
  12. TRAZODONE HYDROCHLORIDE [Concomitant]
  13. LYRICA [Concomitant]
  14. TAMSULOSIN HYDROCHLORIDE [Concomitant]
  15. QUININE SULFATE [Concomitant]

REACTIONS (10)
  - DYSPNOEA [None]
  - CHILLS [None]
  - HYPOTENSION [None]
  - MUSCULOSKELETAL CHEST PAIN [None]
  - WHEEZING [None]
  - OFF LABEL USE [None]
  - HEART RATE INCREASED [None]
  - RESPIRATORY RATE DECREASED [None]
  - DRUG HYPERSENSITIVITY [None]
  - BLOOD PRESSURE INCREASED [None]
